APPROVED DRUG PRODUCT: CARISOPRODOL
Active Ingredient: CARISOPRODOL
Strength: 350MG
Dosage Form/Route: TABLET;ORAL
Application: A040188 | Product #001 | TE Code: AA
Applicant: OXFORD PHARMACEUTICALS LLC
Approved: Mar 7, 1997 | RLD: No | RS: No | Type: RX